FAERS Safety Report 4889796-2 (Version None)
Quarter: 2006Q1

REPORT INFORMATION
  Report Type: 
  Country: None (occurrence: None)
  Receive Date: 20060123
  Receipt Date: 20060123
  Transmission Date: 20060701
  Serious: Yes (Disabling)
  Sender: FDA-Public Use
  Company Number: None

PATIENT
  Age: 44 Year
  Sex: Male
  Weight: 68.0396 kg

DRUGS (1)
  1. SEPTRA DS [Suspect]
     Indication: STAPHYLOCOCCAL INFECTION
     Dosage: 1 TABLET  BID  PO
     Route: 048
     Dates: start: 20060117, end: 20060118

REACTIONS (3)
  - CHILLS [None]
  - PYREXIA [None]
  - STEVENS-JOHNSON SYNDROME [None]
